FAERS Safety Report 7655104-7 (Version None)
Quarter: 2011Q3

REPORT INFORMATION
  Report Type: 
  Country: None (occurrence: None)
  Receive Date: 20110804
  Receipt Date: 20110725
  Transmission Date: 20111222
  Serious: Yes (Other)
  Sender: FDA-Public Use
  Company Number: US-JNJFOC-20110711101

PATIENT
  Sex: Female
  Weight: 59.88 kg

DRUGS (13)
  1. ALL OTHER THERAPEUTIC PRODUCTS [Concomitant]
     Indication: HYPOTHYROIDISM
     Route: 048
  2. REMICADE [Suspect]
     Route: 042
     Dates: start: 20060101, end: 20080101
  3. NAPROSYN [Concomitant]
     Indication: PAIN
     Dosage: ONCE TO TWICE A DAY AS NEEDED
     Route: 048
  4. REMICADE [Suspect]
     Route: 042
     Dates: start: 20080101
  5. REMICADE [Suspect]
     Indication: SYSTEMIC LUPUS ERYTHEMATOSUS
     Route: 042
     Dates: start: 20090101
  6. REMICADE [Suspect]
     Indication: RHEUMATOID ARTHRITIS
     Route: 042
     Dates: start: 20060101, end: 20080101
  7. ATENOLOL [Concomitant]
     Indication: ARRHYTHMIA
     Route: 048
     Dates: start: 19970101
  8. REMICADE [Suspect]
     Route: 042
     Dates: start: 20090101
  9. PLAQUENIL [Concomitant]
     Indication: SYSTEMIC LUPUS ERYTHEMATOSUS
     Route: 048
     Dates: end: 20060101
  10. FLEXERIL [Concomitant]
     Indication: SLEEP DISORDER THERAPY
     Dosage: AS NEEDED
     Route: 048
  11. REMICADE [Suspect]
     Route: 042
     Dates: start: 20080101
  12. PRILOSEC [Concomitant]
     Indication: GASTROOESOPHAGEAL REFLUX DISEASE
     Route: 048
     Dates: start: 19910101
  13. ASPIRIN [Concomitant]
     Indication: PROPHYLAXIS
     Route: 048
     Dates: start: 20000101

REACTIONS (6)
  - CHEST DISCOMFORT [None]
  - PRODUCTIVE COUGH [None]
  - DRUG INEFFECTIVE [None]
  - JAW OPERATION [None]
  - CHEST PAIN [None]
  - PRODUCT QUALITY ISSUE [None]
